FAERS Safety Report 13038404 (Version 2)
Quarter: 2018Q1

REPORT INFORMATION
  Report Type: Spontaneous
  Country: US (occurrence: US)
  Receive Date: 20161219
  Receipt Date: 20180102
  Transmission Date: 20180508
  Serious: Yes (Hospitalization, Other)
  Sender: FDA-Public Use
  Company Number: US-SUN PHARMACEUTICAL INDUSTRIES LTD-2016US-129675

PATIENT
  Age: 55 Year
  Sex: Female

DRUGS (1)
  1. SULPHAMETHOXAZOLE/TRIMETHOPRIM [Suspect]
     Active Substance: SULFAMETHOXAZOLE\TRIMETHOPRIM
     Indication: CELLULITIS
     Route: 065

REACTIONS (4)
  - Acute febrile neutrophilic dermatosis [Recovered/Resolved]
  - Distributive shock [Recovering/Resolving]
  - Multi-organ disorder [Unknown]
  - Atrial fibrillation [Recovering/Resolving]
